FAERS Safety Report 24630405 (Version 1)
Quarter: 2024Q4

REPORT INFORMATION
  Report Type: Spontaneous
  Country: US (occurrence: US)
  Receive Date: 20241118
  Receipt Date: 20241118
  Transmission Date: 20250114
  Serious: No
  Sender: SPECGX
  Company Number: US-SPECGX-T202400560

PATIENT
  Sex: Female
  Weight: 93 kg

DRUGS (1)
  1. DEXTROAMPHETAMINE SACCHARATE, AMPHETAMINE ASPARTATE, DEXTROAMPHETAMINE [Suspect]
     Active Substance: AMPHETAMINE ASPARTATE\AMPHETAMINE SULFATE\DEXTROAMPHETAMINE SACCHARATE\DEXTROAMPHETAMINE SULFATE
     Indication: Attention deficit hyperactivity disorder
     Dosage: 10 MILLIGRAM, PRN (PRESCRIBED TWICE A DAY, TAKING IT AS NEEDED)
     Route: 048

REACTIONS (4)
  - Feeling abnormal [Unknown]
  - Suspected product contamination [Unknown]
  - Drug screen false positive [Unknown]
  - Off label use [Unknown]
